FAERS Safety Report 7518942 (Version 6)
Quarter: 2020Q3

REPORT INFORMATION
  Report Type: Spontaneous
  Country: JP (occurrence: JP)
  Receive Date: 20100802
  Receipt Date: 20200324
  Transmission Date: 20201104
  Serious: Yes (Other)
  Sender: FDA-Public Use
  Company Number: JP-PFIZER INC-2010091602

PATIENT
  Age: 79 Year
  Sex: Male
  Weight: 48.9 kg

DRUGS (6)
  1. METHYCOBAL [Suspect]
     Active Substance: METHYLCOBALAMIN
     Indication: HYPOAESTHESIA
     Dosage: 500 MICROGRAMS DAILY
     Route: 065
     Dates: start: 20090627
  2. LOXONIN [Suspect]
     Active Substance: LOXOPROFEN SODIUM
     Indication: PAIN
     Dosage: 60 MG, 1X/DAY
     Route: 048
     Dates: start: 20090627
  3. NEUROTROPIN [Suspect]
     Active Substance: NEUROTROPIN
     Indication: PAIN
     Dosage: 3 ML OF 3.6 UNITS EVERY 1?2/MONTH
     Route: 042
     Dates: start: 20100430
  4. MUCOSTA [Suspect]
     Active Substance: REBAMIPIDE
     Indication: GASTRITIS PROPHYLAXIS
     Dosage: 100 MG DAILY
     Route: 048
     Dates: start: 20090627
  5. LYRICA [Suspect]
     Active Substance: PREGABALIN
     Indication: POST HERPETIC NEURALGIA
     Dosage: 75 MG, 2X/DAY
     Route: 048
     Dates: start: 20100714, end: 20100721
  6. ARICEPT [Suspect]
     Active Substance: DONEPEZIL HYDROCHLORIDE
     Indication: SENILE DEMENTIA
     Dosage: 5 MG, 1X/DAY
     Route: 048
     Dates: start: 20090219

REACTIONS (3)
  - Feeling abnormal [Recovering/Resolving]
  - Epilepsy [Recovering/Resolving]
  - Pain [Recovering/Resolving]

NARRATIVE: CASE EVENT DATE: 20100715
